FAERS Safety Report 18767312 (Version 2)
Quarter: 2022Q3

REPORT INFORMATION
  Report Type: Spontaneous
  Country: JP (occurrence: JP)
  Receive Date: 20210121
  Receipt Date: 20220714
  Transmission Date: 20221027
  Serious: Yes (Other)
  Sender: FDA-Public Use
  Company Number: JP-GSKNCCC-CASE-01126684_AE-39414

PATIENT

DRUGS (1)
  1. REQUIP [Suspect]
     Active Substance: ROPINIROLE HYDROCHLORIDE
     Dosage: 10MG
     Route: 048

REACTIONS (4)
  - Parkinson^s disease [Unknown]
  - Dysphagia [Unknown]
  - Fracture [Unknown]
  - General physical health deterioration [Unknown]
